FAERS Safety Report 24455290 (Version 2)
Quarter: 2024Q4

REPORT INFORMATION
  Report Type: Report from Study
  Country: US (occurrence: US)
  Receive Date: 20241017
  Receipt Date: 20241018
  Transmission Date: 20250115
  Serious: No
  Sender: ROCHE
  Company Number: US-ROCHE-3483747

PATIENT
  Age: 64 Year
  Sex: Female
  Weight: 85.3 kg

DRUGS (13)
  1. RITUXAN [Suspect]
     Active Substance: RITUXIMAB
     Indication: Rheumatoid arthritis
     Dosage: ON DAY 1 AND DAY 15 THEN EVERY 6 MONTHS. DATE OF TREATMENT: 30/DEC/2022, 14/JUL/2023 AND 30/ JUN.
     Route: 042
     Dates: start: 20231212
  2. MEPERIDINE [Concomitant]
     Active Substance: MEPERIDINE
     Route: 042
  3. DAYPRO [Concomitant]
     Active Substance: OXAPROZIN
     Route: 048
  4. GABAPENTIN [Concomitant]
     Active Substance: GABAPENTIN
     Route: 048
  5. FOLIC ACID [Concomitant]
     Active Substance: FOLIC ACID
     Route: 048
  6. IRON [Concomitant]
     Active Substance: IRON
     Route: 048
  7. HYDROCHLOROTHIAZIDE\LISINOPRIL [Concomitant]
     Active Substance: HYDROCHLOROTHIAZIDE\LISINOPRIL
     Route: 048
  8. OSCAL 500 [Concomitant]
     Route: 048
  9. PILOCARPINE [Concomitant]
     Active Substance: PILOCARPINE
     Route: 048
  10. PRILOSEC [Concomitant]
     Active Substance: OMEPRAZOLE MAGNESIUM
     Route: 048
  11. SULFASALAZINE [Concomitant]
     Active Substance: SULFASALAZINE
     Route: 048
  12. TYLENOL [Concomitant]
     Active Substance: ACETAMINOPHEN
  13. SODIUM CHLORIDE [Concomitant]
     Active Substance: SODIUM CHLORIDE
     Dosage: AT 42ML/HR

REACTIONS (7)
  - Depression [Unknown]
  - Facet joint syndrome [Unknown]
  - Hyperlipidaemia [Unknown]
  - Sialoadenitis [Unknown]
  - Vitamin D decreased [Unknown]
  - Ear infection [Unknown]
  - Pain [Unknown]
